FAERS Safety Report 5877017-3 (Version None)
Quarter: 2008Q3

REPORT INFORMATION
  Report Type: 
  Country: None (occurrence: None)
  Receive Date: 20080910
  Receipt Date: 20080902
  Transmission Date: 20090109
  Serious: Yes (Hospitalization, Other)
  Sender: FDA-Public Use
  Company Number: PHHY2008US17647

PATIENT
  Sex: Male

DRUGS (2)
  1. LIORESAL [Suspect]
     Indication: MUSCLE SPASTICITY
     Dosage: 25 MCG BOLUS
     Route: 037
  2. BACLOFEN [Suspect]
     Dosage: UNK
     Route: 048
     Dates: start: 20080727

REACTIONS (9)
  - DRUG INEFFECTIVE [None]
  - EXPLORATORY OPERATION [None]
  - FEELING ABNORMAL [None]
  - HYPOTONIA [None]
  - MUSCLE SPASMS [None]
  - OVERDOSE [None]
  - PARAESTHESIA [None]
  - PRURITUS [None]
  - WITHDRAWAL SYNDROME [None]
